FAERS Safety Report 12297987 (Version 1)
Quarter: 2016Q2

REPORT INFORMATION
  Report Type: Spontaneous
  Country: CN (occurrence: CN)
  Receive Date: 20160422
  Receipt Date: 20160422
  Transmission Date: 20160815
  Serious: Yes (Death, Other)
  Sender: FDA-Public Use
  Company Number: CN-ASTRAZENECA-2016SE41502

PATIENT
  Age: 35 Year
  Sex: Female

DRUGS (4)
  1. OMEPRAZOLE MAGNESIUM. [Suspect]
     Active Substance: OMEPRAZOLE MAGNESIUM
     Indication: ECTOPIC PREGNANCY
     Dosage: JULY 3
     Route: 048
  2. METHOTREXATE [Suspect]
     Active Substance: METHOTREXATE
     Indication: ECTOPIC PREGNANCY
     Dosage: ON 29TH DAY
     Route: 030
  3. METHOTREXATE [Suspect]
     Active Substance: METHOTREXATE
     Indication: ECTOPIC PREGNANCY
     Dosage: JUNE 28
     Route: 065
  4. METHOTREXATE [Suspect]
     Active Substance: METHOTREXATE
     Indication: ECTOPIC PREGNANCY
     Dosage: JUNE 26, 27, STOPPING IT ON THE 28TH DAY
     Route: 030

REACTIONS (19)
  - Diet refusal [Unknown]
  - Odynophagia [Unknown]
  - Hypophagia [Unknown]
  - Asthenia [Unknown]
  - Vomiting [Unknown]
  - Pyrexia [Unknown]
  - Dizziness [Unknown]
  - Thrombocytopenia [Fatal]
  - Fatigue [Unknown]
  - Mouth ulceration [Unknown]
  - Drug hypersensitivity [Fatal]
  - Rash [Unknown]
  - Bone marrow failure [Fatal]
  - Agranulocytosis [Fatal]
  - Anaemia [Fatal]
  - Back pain [Unknown]
  - Oral pain [Unknown]
  - Nausea [Unknown]
  - Dry throat [Unknown]
